FAERS Safety Report 25010117 (Version 1)
Quarter: 2025Q1

REPORT INFORMATION
  Report Type: Report from Study
  Country: CA (occurrence: CA)
  Receive Date: 20250225
  Receipt Date: 20250225
  Transmission Date: 20250409
  Serious: Yes (Other)
  Sender: TAKEDA
  Company Number: CA-TAKEDA-2024TUS048158

PATIENT
  Age: 48 Year
  Sex: Male

DRUGS (6)
  1. VEDOLIZUMAB [Suspect]
     Active Substance: VEDOLIZUMAB
     Indication: Colitis ulcerative
  2. VEDOLIZUMAB [Suspect]
     Active Substance: VEDOLIZUMAB
  3. VARENICLINE [Concomitant]
     Active Substance: VARENICLINE
  4. ZOLOFT [Concomitant]
     Active Substance: SERTRALINE HYDROCHLORIDE
  5. Salofalk [Concomitant]
  6. MESALAMINE [Concomitant]
     Active Substance: MESALAMINE

REACTIONS (6)
  - Haematochezia [Recovered/Resolved]
  - Diarrhoea [Unknown]
  - Food poisoning [Unknown]
  - Abdominal discomfort [Unknown]
  - Back pain [Unknown]
  - Fatigue [Unknown]

NARRATIVE: CASE EVENT DATE: 20240510
